FAERS Safety Report 16233294 (Version 1)
Quarter: 2019Q2

REPORT INFORMATION
  Report Type: Spontaneous
  Country: US (occurrence: US)
  Receive Date: 20190424
  Receipt Date: 20190424
  Transmission Date: 20190711
  Serious: Yes (Other)
  Sender: FDA-Public Use
  Company Number: US-AUROBINDO-AUR-APL-2019-023867

PATIENT

DRUGS (3)
  1. XELJANZ [Suspect]
     Active Substance: TOFACITINIB CITRATE
     Indication: WRIST DEFORMITY
     Dosage: UNK
     Route: 048
     Dates: end: 20190220
  2. PREDNISONE. [Suspect]
     Active Substance: PREDNISONE
     Indication: RHEUMATOID ARTHRITIS
     Dosage: UNK
     Route: 065
     Dates: start: 2007
  3. METHOTREXATE. [Suspect]
     Active Substance: METHOTREXATE
     Indication: RHEUMATOID ARTHRITIS
     Dosage: ONCE A WEEK
     Route: 048
     Dates: start: 2007

REACTIONS (9)
  - Impaired work ability [Unknown]
  - Wrist deformity [Unknown]
  - Ear discomfort [Unknown]
  - Deafness [Not Recovered/Not Resolved]
  - Head discomfort [Unknown]
  - Productive cough [Unknown]
  - Sinus disorder [Unknown]
  - Immunosuppression [Not Recovered/Not Resolved]
  - Nasopharyngitis [Unknown]

NARRATIVE: CASE EVENT DATE: 20190201
